FAERS Safety Report 11966644 (Version 1)
Quarter: 2016Q1

REPORT INFORMATION
  Report Type: Spontaneous
  Country: US (occurrence: US)
  Receive Date: 20160127
  Receipt Date: 20160127
  Transmission Date: 20160526
  Serious: Yes (Other)
  Sender: FDA-Public Use
  Company Number: US-GRANULES INDIA LIMITED-1046967

PATIENT
  Age: 53 Year
  Sex: Female
  Weight: 90.91 kg

DRUGS (1)
  1. IBUPROFEN. [Suspect]
     Active Substance: IBUPROFEN
     Indication: PAIN
     Route: 048
     Dates: start: 20150101, end: 20150121

REACTIONS (2)
  - Adverse event [Not Recovered/Not Resolved]
  - Diarrhoea [None]

NARRATIVE: CASE EVENT DATE: 20150121
